FAERS Safety Report 24179345 (Version 1)
Quarter: 2024Q3

REPORT INFORMATION
  Report Type: Spontaneous
  Country: CN (occurrence: CN)
  Receive Date: 20240806
  Receipt Date: 20240806
  Transmission Date: 20241017
  Serious: Yes (Hospitalization)
  Sender: ELI LILLY AND CO
  Company Number: CN-Merck Healthcare KGaA-2024040856

PATIENT
  Age: 66 Year
  Sex: Male
  Weight: 43 kg

DRUGS (5)
  1. ERBITUX [Suspect]
     Active Substance: CETUXIMAB
     Indication: Squamous cell carcinoma of head and neck
     Dosage: 400 MG, UNKNOWN
     Route: 041
     Dates: start: 20240705
  2. CISPLATIN [Suspect]
     Active Substance: CISPLATIN
     Indication: Squamous cell carcinoma of head and neck
     Dosage: 40 MG, DAILY
     Route: 041
     Dates: start: 20240705, end: 20240705
  3. CISPLATIN [Suspect]
     Active Substance: CISPLATIN
     Dosage: 30 MG, DAILY
     Route: 041
     Dates: start: 20240706, end: 20240707
  4. DOCETAXEL [Suspect]
     Active Substance: DOCETAXEL\DOCETAXEL ANHYDROUS
     Indication: Squamous cell carcinoma of head and neck
     Dosage: 80 MG, DAILY
     Route: 041
     Dates: start: 20240705, end: 20240705
  5. DOCETAXEL [Suspect]
     Active Substance: DOCETAXEL\DOCETAXEL ANHYDROUS
     Dosage: 20 MG, DAILY
     Route: 041
     Dates: start: 20240705, end: 20240705

REACTIONS (1)
  - Myelosuppression [Recovering/Resolving]

NARRATIVE: CASE EVENT DATE: 20240713
